FAERS Safety Report 9863000 (Version 2)
Quarter: 2014Q1

REPORT INFORMATION
  Report Type: Spontaneous
  Country: BE (occurrence: BE)
  Receive Date: 20140203
  Receipt Date: 20140203
  Transmission Date: 20141002
  Serious: Yes (Hospitalization)
  Sender: FDA-Public Use
  Company Number: BE-AMGEN-BELSP2013088170

PATIENT
  Age: 85 Year
  Sex: Female

DRUGS (4)
  1. VECTIBIX [Suspect]
     Indication: PRODUCT USED FOR UNKNOWN INDICATION
     Dosage: UNK
     Route: 065
  2. FOLINIC ACID [Concomitant]
     Dosage: UNK
  3. FLUOROURACIL [Concomitant]
     Dosage: UNK
  4. IRINOTECAN [Concomitant]
     Dosage: UNK

REACTIONS (2)
  - Skin infection [Unknown]
  - Fungal infection [Unknown]
